FAERS Safety Report 5505706-9 (Version None)
Quarter: 2007Q4

REPORT INFORMATION
  Report Type: 
  Country: None (occurrence: None)
  Receive Date: 20071102
  Receipt Date: 20071025
  Transmission Date: 20080405
  Serious: Yes (Other)
  Sender: FDA-Public Use
  Company Number: AU-SANOFI-SYNTHELABO-A01200706021

PATIENT
  Sex: Male

DRUGS (1)
  1. PLAVIX [Suspect]
     Indication: MYOCARDIAL INFARCTION
     Route: 048
     Dates: start: 20050401

REACTIONS (5)
  - ANAEMIA [None]
  - DYSPNOEA [None]
  - MULTIPLE MYELOMA [None]
  - PNEUMONIA [None]
  - SKIN IRRITATION [None]
